FAERS Safety Report 22119015 (Version 14)
Quarter: 2023Q2

REPORT INFORMATION
  Report Type: Spontaneous
  Country: None (occurrence: GB)
  Receive Date: 20230321
  Receipt Date: 20230605
  Transmission Date: 20230721
  Serious: Yes (Hospitalization, Other)
  Sender: FDA-Public Use
  Company Number: GB-Therakind Limited-2139317

PATIENT
  Age: 34 Year
  Sex: Female

DRUGS (6)
  1. METHOTREXATE [Suspect]
     Active Substance: METHOTREXATE
     Indication: Product used for unknown indication
  2. VEDOLIZUMAB [Suspect]
     Active Substance: VEDOLIZUMAB
  3. REMICADE [Suspect]
     Active Substance: INFLIXIMAB
     Route: 057
  4. ADALIMUMAB [Suspect]
     Active Substance: ADALIMUMAB
  5. USTEKINUMAB [Concomitant]
     Active Substance: USTEKINUMAB
     Dates: start: 20211112, end: 2022
  6. RIFAXIMIN [Suspect]
     Active Substance: RIFAXIMIN

REACTIONS (11)
  - Small intestinal obstruction [Unknown]
  - Frequent bowel movements [Unknown]
  - Pneumonia [Unknown]
  - Nerve injury [Unknown]
  - Gastrointestinal bacterial overgrowth [Unknown]
  - Quality of life decreased [Unknown]
  - Pancreatitis [Unknown]
  - Crohn^s disease [Unknown]
  - Incontinence [Unknown]
  - Drug specific antibody [Unknown]
  - Drug ineffective [Unknown]

NARRATIVE: CASE EVENT DATE: 20220101
